FAERS Safety Report 6554828-2 (Version None)
Quarter: 2010Q1

REPORT INFORMATION
  Report Type: 
  Country: None (occurrence: None)
  Receive Date: 20100127
  Receipt Date: 20100118
  Transmission Date: 20100710
  Serious: Yes (Hospitalization)
  Sender: FDA-Public Use
  Company Number: US-AMGEN-KDL349904

PATIENT
  Sex: Female
  Weight: 85.8 kg

DRUGS (30)
  1. ARANESP [Suspect]
     Indication: RENAL FAILURE CHRONIC
     Route: 058
     Dates: start: 20081003
  2. FOLIC ACID [Concomitant]
     Route: 048
     Dates: end: 20090824
  3. VITAMIN B-12 [Concomitant]
     Route: 058
  4. NEURONTIN [Concomitant]
     Route: 048
     Dates: end: 20090824
  5. ULTRAM [Concomitant]
  6. DELTASONE [Concomitant]
     Route: 048
     Dates: end: 20090824
  7. DITROPAN [Concomitant]
  8. OSCAL [Concomitant]
     Route: 048
     Dates: end: 20090824
  9. POTASSIUM [Concomitant]
  10. IMDUR [Concomitant]
     Route: 048
     Dates: end: 20090824
  11. SYNTHROID [Concomitant]
     Route: 048
     Dates: end: 20090824
  12. TOPROL-XL [Concomitant]
     Route: 048
     Dates: end: 20090824
  13. AMLODIPINE [Concomitant]
  14. NEXIUM [Concomitant]
     Route: 048
     Dates: end: 20090824
  15. VITAMIN TAB [Concomitant]
  16. VITAMIN C [Concomitant]
     Route: 048
     Dates: end: 20090824
  17. MIRALAX [Concomitant]
     Route: 048
     Dates: end: 20090824
  18. TYLENOL [Concomitant]
  19. FERROUS SULFATE TAB [Concomitant]
  20. NEUPOGEN [Concomitant]
  21. NEULASTA [Concomitant]
  22. NORCO [Concomitant]
     Route: 048
     Dates: end: 20090824
  23. NITROSTAT [Concomitant]
     Route: 060
  24. COLACE [Concomitant]
     Route: 048
  25. ZINC OXIDE [Concomitant]
     Route: 061
  26. ATIVAN [Concomitant]
     Route: 048
  27. LASIX [Concomitant]
     Route: 048
     Dates: end: 20090824
  28. LANOXIN [Concomitant]
     Route: 048
     Dates: end: 20090824
  29. FOLATE SODIUM [Concomitant]
     Route: 048
  30. PROMACTA [Concomitant]
     Dates: start: 20090701

REACTIONS (8)
  - CARDIAC FAILURE CONGESTIVE [None]
  - HOSPITALISATION [None]
  - PANCYTOPENIA [None]
  - PNEUMONIA [None]
  - RESPIRATORY FAILURE [None]
  - SEPSIS [None]
  - THERAPEUTIC RESPONSE DECREASED [None]
  - URINARY TRACT INFECTION [None]
